FAERS Safety Report 20184817 (Version 1)
Quarter: 2021Q4

REPORT INFORMATION
  Report Type: Report from Study
  Country: US (occurrence: US)
  Receive Date: 20211214
  Receipt Date: 20211214
  Transmission Date: 20220303
  Serious: Yes (Hospitalization)
  Sender: FDA-Public Use
  Company Number: US-ABBVIE-21K-163-4197025-00

PATIENT
  Sex: Female

DRUGS (2)
  1. IMBRUVICA [Suspect]
     Active Substance: IBRUTINIB
     Indication: Chronic graft versus host disease
     Route: 048
     Dates: start: 202108
  2. IMBRUVICA [Suspect]
     Active Substance: IBRUTINIB
     Route: 048
     Dates: start: 2021, end: 2021

REACTIONS (5)
  - Chest pain [Unknown]
  - Pleural effusion [Unknown]
  - Dysphagia [Unknown]
  - Hypophagia [Unknown]
  - Headache [Unknown]

NARRATIVE: CASE EVENT DATE: 20210101
